FAERS Safety Report 25995726 (Version 1)
Quarter: 2025Q4

REPORT INFORMATION
  Report Type: Spontaneous
  Country: US (occurrence: None)
  Receive Date: 20251103
  Receipt Date: 20251103
  Transmission Date: 20260117
  Serious: No
  Sender: FDA-CTU
  Company Number: None

PATIENT
  Age: 65 Year
  Sex: Female

DRUGS (1)
  1. POMALYST [Suspect]
     Active Substance: POMALIDOMIDE
     Indication: Paraproteinaemia
     Dosage: 4MG QD ORAL
     Route: 048
     Dates: start: 20250819, end: 20250910

REACTIONS (4)
  - Illness [None]
  - Decreased activity [None]
  - Oedema peripheral [None]
  - Therapy cessation [None]

NARRATIVE: CASE EVENT DATE: 20250910
